FAERS Safety Report 8811461 (Version 1)
Quarter: 2012Q4

REPORT INFORMATION
  Report Type: 
  Country: CN (occurrence: CN)
  Receive Date: 20120927
  Receipt Date: 20120927
  Transmission Date: 20130627
  Serious: Yes (Other)
  Sender: FDA-Public Use
  Company Number: CN-PFIZER INC-2012235781

PATIENT
  Sex: Male

DRUGS (2)
  1. VIAGRA [Suspect]
     Dosage: UNK
     Route: 048
  2. BETALOC ZOK ^ASTRA^ [Concomitant]
     Dosage: UNK
     Route: 048

REACTIONS (2)
  - Hypoacusis [Unknown]
  - Myalgia [Unknown]
